FAERS Safety Report 4734719-X (Version None)
Quarter: 2005Q3

REPORT INFORMATION
  Report Type: 
  Country: None (occurrence: None)
  Receive Date: 20050804
  Receipt Date: 20050215
  Transmission Date: 20060218
  Serious: Yes (Life-Threatening, Hospitalization, Disabling, Other)
  Sender: FDA-Public Use
  Company Number: US-GLAXOSMITHKLINE-A0545684A

PATIENT
  Age: 61 Year
  Sex: Male

DRUGS (2)
  1. AMOXICILLIN AND CLAVULANATE POTASSIUM [Suspect]
     Indication: SKIN INFECTION
     Dosage: 250MG TWICE PER DAY
     Route: 048
     Dates: start: 20050201, end: 20050201
  2. CILOXAN [Concomitant]
     Dosage: 1DROP FOUR TIMES PER DAY

REACTIONS (3)
  - BLOOD BILIRUBIN INCREASED [None]
  - HORDEOLUM [None]
  - JAUNDICE [None]
